FAERS Safety Report 12830812 (Version 3)
Quarter: 2017Q1

REPORT INFORMATION
  Report Type: Report from Study
  Country: RU (occurrence: RU)
  Receive Date: 20161007
  Receipt Date: 20170202
  Transmission Date: 20170428
  Serious: Yes (Death, Life-Threatening, Hospitalization, Disabling)
  Sender: FDA-Public Use
  Company Number: RU-B.I. PHARMACEUTICALS,INC./RIDGEFIELD-2016-BI-17175BI

PATIENT
  Age: 67 Year
  Sex: Male
  Weight: 82 kg

DRUGS (1)
  1. BLINDED TIOTROPIUM BROMIDE+OLODATEROL [Suspect]
     Active Substance: OLODATEROL HYDROCHLORIDE\TIOTROPIUM BROMIDE MONOHYDRATE
     Indication: CHRONIC OBSTRUCTIVE PULMONARY DISEASE
     Route: 055
     Dates: start: 20151207, end: 201602

REACTIONS (6)
  - Multiple organ dysfunction syndrome [Fatal]
  - Pyelonephritis chronic [Not Recovered/Not Resolved]
  - Aortic valve incompetence [Recovered/Resolved]
  - Mesenteric artery thrombosis [Unknown]
  - Stenosis [Recovered/Resolved]
  - Gastrointestinal necrosis [Unknown]

NARRATIVE: CASE EVENT DATE: 20160115
